FAERS Safety Report 7700930-9 (Version None)
Quarter: 2011Q3

REPORT INFORMATION
  Report Type: 
  Country: None (occurrence: None)
  Receive Date: 20110822
  Receipt Date: 20110815
  Transmission Date: 20111222
  Serious: Yes (Other)
  Sender: FDA-Public Use
  Company Number: US-ROCHE-797803

PATIENT
  Sex: Female
  Weight: 58.5 kg

DRUGS (4)
  1. SYNTHROID [Concomitant]
     Dosage: FOR 10 YEARS
  2. TARCEVA [Suspect]
     Dosage: FREQUENCY: QD, 3 MONTHS
     Route: 048
  3. AVASTIN [Suspect]
     Route: 065
  4. SYNTHROID [Concomitant]
     Dosage: OVER 5 DAYS

REACTIONS (5)
  - HYPOTHYROIDISM [None]
  - WEIGHT INCREASED [None]
  - MYXOEDEMA [None]
  - ACUTE RIGHT VENTRICULAR FAILURE [None]
  - RIGHT VENTRICULAR FAILURE [None]
